FAERS Safety Report 12208454 (Version 1)
Quarter: 2016Q1

REPORT INFORMATION
  Report Type: Spontaneous
  Country: US (occurrence: US)
  Receive Date: 20160324
  Receipt Date: 20160324
  Transmission Date: 20160526
  Serious: No
  Sender: FDA-Public Use
  Company Number: US-AMNEAL PHARMACEUTICALS-2015AMN00188

PATIENT

DRUGS (1)
  1. DEMECLOCYCLINE HYDROCHLORIDE. [Suspect]
     Active Substance: DEMECLOCYCLINE HYDROCHLORIDE

REACTIONS (1)
  - Hypersensitivity [Unknown]
